FAERS Safety Report 7018189-7 (Version None)
Quarter: 2010Q3

REPORT INFORMATION
  Report Type: 
  Country: None (occurrence: None)
  Receive Date: 20100928
  Receipt Date: 20100916
  Transmission Date: 20110219
  Serious: Yes (Hospitalization, Other)
  Sender: FDA-Public Use
  Company Number: US-ASTRAZENECA-2010SE43844

PATIENT
  Age: 824 Month
  Sex: Male

DRUGS (1)
  1. NEXIUM [Suspect]
     Route: 048

REACTIONS (5)
  - BACK PAIN [None]
  - BRAIN OPERATION [None]
  - CEREBROVASCULAR ACCIDENT [None]
  - DYSURIA [None]
  - PANCREATIC CARCINOMA [None]
